FAERS Safety Report 4981770-0 (Version None)
Quarter: 2006Q2

REPORT INFORMATION
  Report Type: 
  Country: None (occurrence: None)
  Receive Date: 20060420
  Receipt Date: 20060420
  Transmission Date: 20061013
  Serious: Yes (Other)
  Sender: FDA-Public Use
  Company Number: None

PATIENT
  Age: 76 Year
  Sex: Male
  Weight: 91.6 kg

DRUGS (8)
  1. ERBITUX [Suspect]
  2. LISINOPRIL [Concomitant]
  3. ALLOPURINOL [Concomitant]
  4. LORATADINE [Concomitant]
  5. HEPARIN SODIUM [Concomitant]
  6. FLUTICASONE PROP [Concomitant]
  7. CYANOCOBALAMIN [Concomitant]
  8. SENNOSIDES [Concomitant]

REACTIONS (1)
  - ANGIONEUROTIC OEDEMA [None]
